FAERS Safety Report 11573763 (Version 1)
Quarter: 2015Q3

REPORT INFORMATION
  Report Type: Spontaneous
  Country: TR (occurrence: TR)
  Receive Date: 20150929
  Receipt Date: 20150929
  Transmission Date: 20151125
  Serious: Yes (Death, Hospitalization, Other)
  Sender: FDA-Public Use
  Company Number: TR-TAKEDA-2015TUS013080

PATIENT
  Age: 5 Year
  Sex: Male

DRUGS (2)
  1. COLCHICINE. [Suspect]
     Active Substance: COLCHICINE
     Indication: FAMILIAL MEDITERRANEAN FEVER
     Dosage: 1 MG, QD
     Route: 048
  2. COLCHICINE. [Suspect]
     Active Substance: COLCHICINE
     Dosage: 20 MG, UNK
     Route: 048

REACTIONS (1)
  - Toxicity to various agents [Fatal]
